FAERS Safety Report 9918252 (Version 1)
Quarter: 2014Q1

REPORT INFORMATION
  Report Type: Spontaneous
  Country: DK (occurrence: DK)
  Receive Date: 20140224
  Receipt Date: 20140224
  Transmission Date: 20141002
  Serious: Yes (Other)
  Sender: FDA-Public Use
  Company Number: DK-ROCHE-1353449

PATIENT
  Age: 64 Year
  Sex: Male

DRUGS (2)
  1. AVASTIN [Suspect]
     Indication: GLIOBLASTOMA
     Route: 065
     Dates: start: 201310
  2. IRINOTECAN [Concomitant]
     Indication: GLIOBLASTOMA
     Route: 065

REACTIONS (2)
  - Tachycardia [Recovering/Resolving]
  - Palpitations [Recovering/Resolving]
